FAERS Safety Report 21779680 (Version 1)
Quarter: 2022Q4

REPORT INFORMATION
  Report Type: Spontaneous
  Country: TR (occurrence: TR)
  Receive Date: 20221226
  Receipt Date: 20221226
  Transmission Date: 20230113
  Serious: Yes (Hospitalization, Other)
  Sender: FDA-Public Use
  Company Number: TR-002147023-NVSC2022TR297330

PATIENT
  Age: 43 Year
  Sex: Female

DRUGS (4)
  1. MYCOPHENOLATE MOFETIL [Suspect]
     Active Substance: MYCOPHENOLATE MOFETIL
     Indication: Renal transplant
     Dosage: 500 MG, BID
     Route: 065
  2. TACROLIMUS [Suspect]
     Active Substance: TACROLIMUS
     Indication: Renal transplant
     Dosage: 1.5 MG (TABLET, IN THE MORNING)
     Route: 065
  3. TACROLIMUS [Suspect]
     Active Substance: TACROLIMUS
     Dosage: 1 MG (TABLET, IN THE EVENING)
     Route: 065
  4. DELTACORTRIL [Suspect]
     Active Substance: PREDNISOLONE
     Indication: Renal transplant
     Dosage: 2.5 MG, QD
     Route: 065

REACTIONS (1)
  - Acute myeloid leukaemia [Unknown]
